FAERS Safety Report 8595690-6 (Version None)
Quarter: 2012Q3

REPORT INFORMATION
  Report Type: 
  Country: None (occurrence: None)
  Receive Date: 20120815
  Receipt Date: 20120803
  Transmission Date: 20120928
  Serious: Yes (Other)
  Sender: FDA-Public Use
  Company Number: US-ROCHE-1034492

PATIENT
  Sex: Female

DRUGS (4)
  1. ACCUTANE [Suspect]
     Indication: ACNE
     Route: 048
     Dates: start: 19991216
  2. ACCUTANE [Suspect]
     Route: 048
  3. TRIPHASIL-21 [Concomitant]
  4. ORTHO TRI-CYCLEN [Concomitant]

REACTIONS (7)
  - INFLAMMATORY BOWEL DISEASE [None]
  - DEPRESSION [None]
  - ANXIETY [None]
  - IRRITABLE BOWEL SYNDROME [None]
  - CROHN'S DISEASE [None]
  - XEROSIS [None]
  - ANAL FISSURE [None]
